FAERS Safety Report 10606280 (Version 1)
Quarter: 2014Q4

REPORT INFORMATION
  Report Type: Spontaneous
  Country: TR (occurrence: None)
  Receive Date: 20141121
  Receipt Date: 20141121
  Transmission Date: 20150529
  Serious: Yes (Other)
  Sender: FDA-Public Use
  Company Number: 1501024

PATIENT
  Age: 18 Year
  Sex: Female

DRUGS (1)
  1. FLUOXETINE HYDROCHLORIDE (NON-SPECIFIC) [Suspect]
     Active Substance: FLUOXETINE HYDROCHLORIDE
     Indication: MAJOR DEPRESSION

REACTIONS (5)
  - Toxicity to various agents [None]
  - Loss of consciousness [None]
  - Confusional state [None]
  - Intentional overdose [None]
  - Dissociative identity disorder [None]
